FAERS Safety Report 19402988 (Version 1)
Quarter: 2021Q2

REPORT INFORMATION
  Report Type: Report from Study
  Country: US (occurrence: US)
  Receive Date: 20210610
  Receipt Date: 20210610
  Transmission Date: 20210717
  Serious: Yes (Death)
  Sender: FDA-Public Use
  Company Number: US-TEVA-2021-US-1920038

PATIENT
  Age: 57 Year
  Sex: Male

DRUGS (4)
  1. ZOLPIDEM [Suspect]
     Active Substance: ZOLPIDEM TARTRATE
     Indication: SUICIDE ATTEMPT
     Route: 065
  2. CODEINE [Suspect]
     Active Substance: CODEINE
     Indication: SUICIDE ATTEMPT
     Route: 065
  3. ALPRAZOLAM. [Suspect]
     Active Substance: ALPRAZOLAM
     Indication: SUICIDE ATTEMPT
     Route: 065
  4. HYDROCODONE [Suspect]
     Active Substance: HYDROCODONE
     Indication: SUICIDE ATTEMPT
     Route: 065

REACTIONS (2)
  - Toxicity to various agents [Fatal]
  - Suicide attempt [Fatal]
